FAERS Safety Report 11338179 (Version 1)
Quarter: 2015Q3

REPORT INFORMATION
  Report Type: Spontaneous
  Country: US (occurrence: US)
  Receive Date: 20150803
  Receipt Date: 20150803
  Transmission Date: 20151125
  Serious: No
  Sender: FDA-Public Use
  Company Number: US-ELI_LILLY_AND_COMPANY-US201007004517

PATIENT
  Age: 65 Year
  Sex: Female

DRUGS (2)
  1. ZYPREXA [Suspect]
     Active Substance: OLANZAPINE
     Dosage: 1.25 MG, UNK
  2. LAMICTAL [Concomitant]
     Active Substance: LAMOTRIGINE
     Dosage: 100 MG, UNK

REACTIONS (3)
  - Wrong technique in product usage process [Recovered/Resolved]
  - Parkinson^s disease [Not Recovered/Not Resolved]
  - Tardive dyskinesia [Not Recovered/Not Resolved]
